FAERS Safety Report 5218997-9 (Version None)
Quarter: 2007Q1

REPORT INFORMATION
  Report Type: 
  Country: None (occurrence: None)
  Receive Date: 20070125
  Receipt Date: 20070116
  Transmission Date: 20070707
  Serious: Yes (Hospitalization)
  Sender: FDA-Public Use
  Company Number: JP-ROCHE-476230

PATIENT
  Age: 61 Year
  Sex: Male
  Weight: 76 kg

DRUGS (5)
  1. ROCEPHIN [Suspect]
     Indication: BRAIN ABSCESS
     Route: 041
     Dates: start: 20060814, end: 20060906
  2. EXCEGRAN [Suspect]
     Indication: EPILEPSY
     Dosage: FORM REPORTED AS ORAL FORMULATION (NOT OTHERWISE SPECIFIED).
     Route: 048
     Dates: start: 20060812, end: 20060911
  3. MEROPEN [Concomitant]
     Dosage: GENERIC REPORTED AS (MEROPENEM TRIHYDRATE).
     Route: 041
     Dates: start: 20060814, end: 20060823
  4. NEUTROGIN [Concomitant]
     Indication: GRANULOCYTOPENIA
     Route: 058
     Dates: start: 20060908, end: 20060911
  5. CLARITHROMYCIN [Concomitant]
     Dosage: STARTED PRIOR TO ERUPTION.
     Dates: start: 20060906, end: 20060909

REACTIONS (3)
  - DISCOMFORT [None]
  - ECZEMA [None]
  - GRANULOCYTOPENIA [None]
